FAERS Safety Report 7537447-0 (Version None)
Quarter: 2011Q2

REPORT INFORMATION
  Report Type: 
  Country: None (occurrence: None)
  Receive Date: 20110608
  Receipt Date: 20110608
  Transmission Date: 20111010
  Serious: Yes (Other)
  Sender: FDA-Public Use
  Company Number: None

PATIENT
  Age: 70 Year
  Sex: 0
  Weight: 97.977 kg

DRUGS (3)
  1. VALACYCLOVIR [Suspect]
     Indication: ORAL HERPES
     Dosage: 500MG DAILY PO
     Route: 048
     Dates: start: 20100820, end: 20100827
  2. VALACYCLOVIR [Suspect]
     Indication: PROPHYLAXIS
     Dosage: 500MG DAILY PO
     Route: 048
     Dates: start: 20100820, end: 20100827
  3. VALACYCLOVIR [Suspect]
     Dates: start: 20101110, end: 20101120

REACTIONS (5)
  - DYSPNOEA [None]
  - LIP SWELLING [None]
  - DYSURIA [None]
  - NAUSEA [None]
  - PRODUCT SUBSTITUTION ISSUE [None]
